FAERS Safety Report 14368062 (Version 6)
Quarter: 2018Q4

REPORT INFORMATION
  Report Type: Report from Study
  Country: DE (occurrence: DE)
  Receive Date: 20180109
  Receipt Date: 20181211
  Transmission Date: 20190204
  Serious: Yes (Hospitalization)
  Sender: FDA-Public Use
  Company Number: DE-B.I. PHARMACEUTICALS,INC./RIDGEFIELD-2017-BI-068922

PATIENT
  Age: 72 Year
  Sex: Female

DRUGS (18)
  1. BIOTIN [Concomitant]
     Active Substance: BIOTIN
     Indication: SCLERODERMA
     Route: 048
     Dates: start: 201608, end: 20170520
  2. BIOTIN [Concomitant]
     Active Substance: BIOTIN
     Indication: PROPHYLAXIS
     Route: 048
     Dates: start: 20170620
  3. CELLCEPT [Concomitant]
     Active Substance: MYCOPHENOLATE MOFETIL\MYCOPHENOLATE MOFETIL HYDROCHLORIDE
     Indication: SCLERODERMA
     Route: 048
     Dates: start: 20160303, end: 20170519
  4. CICLOPOLI [Concomitant]
     Active Substance: CICLOPIROX
     Indication: ONYCHOMYCOSIS
     Route: 062
     Dates: start: 20170530
  5. TORASEMID [Concomitant]
     Active Substance: TORSEMIDE
     Indication: TRICUSPID VALVE INCOMPETENCE
     Route: 048
     Dates: start: 201603, end: 20170519
  6. CELLCEPT [Concomitant]
     Active Substance: MYCOPHENOLATE MOFETIL\MYCOPHENOLATE MOFETIL HYDROCHLORIDE
     Route: 048
     Dates: start: 20170610
  7. IBUPROFEN. [Concomitant]
     Active Substance: IBUPROFEN
     Indication: SPINAL OSTEOARTHRITIS
     Route: 048
     Dates: start: 201607
  8. BIBF 1120 [Suspect]
     Active Substance: NINTEDANIB
     Indication: SYSTEMIC SCLERODERMA
     Route: 048
     Dates: start: 20170503, end: 20171224
  9. AMPHO MORONAL [Concomitant]
     Active Substance: AMPHOTERICIN B
     Indication: CANDIDA INFECTION
     Dosage: UNIT DOSE AND DAILY DOSE: 400 MG/ML
     Route: 060
     Dates: start: 20170704
  10. TORASEMID [Concomitant]
     Active Substance: TORSEMIDE
     Route: 048
     Dates: start: 20170520
  11. GYNOKADIN [Concomitant]
     Active Substance: ESTRADIOL
     Indication: HORMONE REPLACEMENT THERAPY
     Route: 048
     Dates: start: 200707
  12. BIBF 1120 [Suspect]
     Active Substance: NINTEDANIB
     Indication: INTERSTITIAL LUNG DISEASE
     Route: 048
     Dates: start: 20180123
  13. BUSCOPAN [Concomitant]
     Active Substance: BUTYLSCOPOLAMINE BROMIDE
     Indication: ABDOMINAL PAIN
     Route: 048
     Dates: start: 20170701
  14. COTRICAM [Concomitant]
     Indication: TINEA PEDIS
     Route: 062
     Dates: start: 20170626
  15. CELLCEPT [Concomitant]
     Active Substance: MYCOPHENOLATE MOFETIL\MYCOPHENOLATE MOFETIL HYDROCHLORIDE
     Route: 048
     Dates: start: 20170520, end: 20170609
  16. OMEPRAZOLE. [Concomitant]
     Active Substance: OMEPRAZOLE
     Indication: GASTROOESOPHAGEAL REFLUX DISEASE
     Route: 048
     Dates: start: 201602
  17. IBUPROFEN. [Concomitant]
     Active Substance: IBUPROFEN
     Indication: BACK PAIN
     Route: 048
     Dates: start: 20170426, end: 20170430
  18. CANESTEN [Concomitant]
     Active Substance: CLOTRIMAZOLE
     Indication: TINEA PEDIS
     Route: 062
     Dates: start: 20170626

REACTIONS (2)
  - Diverticulitis [Recovered/Resolved]
  - Diverticulum [Not Recovered/Not Resolved]

NARRATIVE: CASE EVENT DATE: 201711
